FAERS Safety Report 6730025-2 (Version None)
Quarter: 2010Q2

REPORT INFORMATION
  Report Type: 
  Country: None (occurrence: None)
  Receive Date: 20100518
  Receipt Date: 20100506
  Transmission Date: 20101027
  Serious: Yes (Disabling)
  Sender: FDA-Public Use
  Company Number: B016879

PATIENT
  Age: 36 Month
  Sex: Male

DRUGS (5)
  1. PARAPLATIN [Suspect]
     Indication: AESTHESIONEUROBLASTOMA
     Dosage: DOSE UNIT: MILLIGRAM/SQUARE METER
     Route: 050
  2. VEPESID [Suspect]
     Indication: AESTHESIONEUROBLASTOMA
     Dosage: DOSE UNIT: MILLIGRAM/SQUARE METER
  3. CEFTRIAXONE [Concomitant]
  4. AMIKACIN [Concomitant]
  5. METHICILLIN [Concomitant]

REACTIONS (1)
  - RENAL TUBULAR DISORDER [None]
